FAERS Safety Report 6911540-5 (Version None)
Quarter: 2010Q3

REPORT INFORMATION
  Report Type: 
  Country: None (occurrence: None)
  Receive Date: 20100806
  Receipt Date: 20100708
  Transmission Date: 20110219
  Serious: No
  Sender: FDA-Public Use
  Company Number: US-JNJFOC-20100703055

PATIENT
  Age: 55 Year
  Sex: Male
  Weight: 68.95 kg

DRUGS (1)
  1. INVEGA [Suspect]
     Indication: SCHIZOPHRENIA
     Route: 048

REACTIONS (5)
  - ABNORMAL DREAMS [None]
  - ERECTILE DYSFUNCTION [None]
  - PAINFUL ERECTION [None]
  - PALPITATIONS [None]
  - SEXUAL DYSFUNCTION [None]
